FAERS Safety Report 15785876 (Version 3)
Quarter: 2019Q1

REPORT INFORMATION
  Report Type: Spontaneous
  Country: BR (occurrence: BR)
  Receive Date: 20190103
  Receipt Date: 20190116
  Transmission Date: 20190417
  Serious: Yes (Other)
  Sender: FDA-Public Use
  Company Number: BR-PFIZER INC-2018536584

PATIENT
  Age: 84 Year
  Sex: Female

DRUGS (2)
  1. LORAX//LORAZEPAM [Suspect]
     Active Substance: LORAZEPAM
     Indication: ANXIETY
     Dosage: 2 MG , DAILY (1 TABLET OF 2 MG AT NIGHT)
     Dates: start: 1992
  2. LORAX//LORAZEPAM [Suspect]
     Active Substance: LORAZEPAM
     Indication: INSOMNIA

REACTIONS (3)
  - Senile dementia [Recovered/Resolved]
  - Dependence [Recovered/Resolved]
  - Product use issue [Recovered/Resolved]

NARRATIVE: CASE EVENT DATE: 1999
